FAERS Safety Report 18496836 (Version 1)
Quarter: 2020Q4

REPORT INFORMATION
  Report Type: Report from Study
  Country: TW (occurrence: TW)
  Receive Date: 20201112
  Receipt Date: 20201112
  Transmission Date: 20210114
  Serious: Yes (Other)
  Sender: FDA-Public Use
  Company Number: TW-JNJFOC-20201109550

PATIENT

DRUGS (14)
  1. SIMPONI [Suspect]
     Active Substance: GOLIMUMAB
     Indication: PALMOPLANTAR PUSTULOSIS
     Route: 058
  2. CICLOSPORIN [Suspect]
     Active Substance: CYCLOSPORINE
     Indication: PALMOPLANTAR PUSTULOSIS
     Route: 065
  3. ADALIMUMAB [Suspect]
     Active Substance: ADALIMUMAB
     Indication: PALMOPLANTAR PUSTULOSIS
     Route: 065
  4. ACITRETIN. [Suspect]
     Active Substance: ACITRETIN
     Indication: PALMOPLANTAR PUSTULOSIS
     Route: 065
  5. PREDNISOLONE. [Suspect]
     Active Substance: PREDNISOLONE
     Indication: PALMOPLANTAR PUSTULOSIS
     Route: 065
  6. DAPSONE. [Suspect]
     Active Substance: DAPSONE
     Indication: PALMOPLANTAR PUSTULOSIS
     Route: 065
  7. TOCILIZUMAB. [Suspect]
     Active Substance: TOCILIZUMAB
     Indication: PALMOPLANTAR PUSTULOSIS
     Route: 065
  8. ETANERCEPT [Suspect]
     Active Substance: ETANERCEPT
     Indication: PALMOPLANTAR PUSTULOSIS
     Route: 065
  9. STELARA [Suspect]
     Active Substance: USTEKINUMAB
     Indication: PALMOPLANTAR PUSTULOSIS
     Route: 058
  10. POTASSIUM IODIDE. [Suspect]
     Active Substance: POTASSIUM IODIDE
     Indication: PALMOPLANTAR PUSTULOSIS
  11. SECUKINUMAB. [Suspect]
     Active Substance: SECUKINUMAB
     Indication: PALMOPLANTAR PUSTULOSIS
     Route: 065
  12. CALCIPOTRIOL [Suspect]
     Active Substance: CALCIPOTRIENE
     Indication: PALMOPLANTAR PUSTULOSIS
     Route: 061
  13. METHOTREXATE. [Suspect]
     Active Substance: METHOTREXATE
     Indication: PALMOPLANTAR PUSTULOSIS
     Route: 065
  14. TAZAROTENE. [Suspect]
     Active Substance: TAZAROTENE
     Indication: PALMOPLANTAR PUSTULOSIS
     Route: 061

REACTIONS (6)
  - Product use in unapproved indication [Unknown]
  - Abortion spontaneous [Recovered/Resolved]
  - Adverse drug reaction [Unknown]
  - Loss of therapeutic response [Unknown]
  - Off label use [Unknown]
  - Exposure during pregnancy [Recovered/Resolved]
